FAERS Safety Report 10150076 (Version 2)
Quarter: 2014Q2

REPORT INFORMATION
  Report Type: Not Available
  Country: US (occurrence: US)
  Receive Date: 20140502
  Receipt Date: 20140512
  Transmission Date: 20141212
  Serious: Yes (Hospitalization, Other)
  Sender: FDA-Public Use
  Company Number: US-VIROPHARMA INCORPORATED-20140421CINRY6212

PATIENT
  Age: 31 Year
  Sex: Female
  Weight: 69.46 kg

DRUGS (12)
  1. CINRYZE (C1 ESTERASE INHIBITOR (HUMAN)) [Suspect]
     Indication: HEREDITARY ANGIOEDEMA
     Route: 042
     Dates: start: 20140226, end: 20140430
  2. CINRYZE (C1 ESTERASE INHIBITOR (HUMAN)) [Suspect]
     Indication: PROPHYLAXIS
     Route: 042
     Dates: start: 201405
  3. COUMADIN [Suspect]
     Indication: ANTICOAGULANT THERAPY
     Dosage: UNKNOWN
     Route: 048
  4. AMBIEN [Concomitant]
     Indication: PRODUCT USED FOR UNKNOWN INDICATION
     Dosage: UNKNOWN
     Route: 048
  5. XARELTO [Concomitant]
     Indication: THROMBOSIS PROPHYLAXIS
     Route: 048
  6. PEPCID [Concomitant]
     Indication: DYSPEPSIA
     Route: 048
  7. LORAZEPAM [Concomitant]
     Indication: ANXIETY
     Route: 048
  8. DILAUDID [Concomitant]
     Indication: PAIN
     Route: 048
  9. OXYCODONE [Concomitant]
     Indication: PAIN
     Route: 048
  10. BACTRIM [Concomitant]
     Indication: LOCALISED INFECTION
     Dosage: 800/60
     Route: 048
  11. DANAZOL [Concomitant]
     Indication: HEREDITARY ANGIOEDEMA
     Route: 048
     Dates: start: 201402
  12. ATARAX [Concomitant]
     Indication: PRODUCT USED FOR UNKNOWN INDICATION
     Route: 048

REACTIONS (14)
  - Epistaxis [Recovered/Resolved]
  - Angioedema [Unknown]
  - Blindness transient [Recovered/Resolved]
  - Infusion related reaction [Recovered/Resolved]
  - Coordination abnormal [Unknown]
  - Migraine [Unknown]
  - Haemoptysis [Recovered/Resolved]
  - Pyrexia [Unknown]
  - Chest pain [Recovered/Resolved]
  - Gait disturbance [Recovered/Resolved]
  - Vomiting projectile [Recovered/Resolved]
  - Nausea [Recovered/Resolved]
  - Retching [Recovered/Resolved]
  - Inappropriate schedule of drug administration [Not Recovered/Not Resolved]
